FAERS Safety Report 17736236 (Version 1)
Quarter: 2020Q2

REPORT INFORMATION
  Report Type: Report from Study
  Country: US (occurrence: US)
  Receive Date: 20200501
  Receipt Date: 20200501
  Transmission Date: 20200714
  Serious: Yes (Hospitalization, Other)
  Sender: FDA-Public Use
  Company Number: US-EXELIXIS-XL18420029171

PATIENT

DRUGS (5)
  1. IPILIMUMAB [Suspect]
     Active Substance: IPILIMUMAB
     Indication: BLADDER CANCER
     Dosage: 1 MG/KG (ON DAY 1)
     Route: 042
     Dates: start: 20200127, end: 20200305
  2. XL184 [Suspect]
     Active Substance: CABOZANTINIB
     Indication: BLADDER CANCER
     Dosage: 40 MG, QD
     Dates: start: 20200127
  3. NIVOLUMAB [Suspect]
     Active Substance: NIVOLUMAB
     Dosage: 238 MG
     Route: 042
     Dates: start: 20200306
  4. NIVOLUMAB [Suspect]
     Active Substance: NIVOLUMAB
     Indication: BLADDER CANCER
     Dosage: 3 MG/KG (ON DAY 1)
     Route: 042
     Dates: start: 20200127, end: 20200305
  5. IPILIMUMAB [Suspect]
     Active Substance: IPILIMUMAB
     Dosage: 79.3 MG
     Route: 042
     Dates: start: 20200306

REACTIONS (2)
  - Pyrexia [Recovered/Resolved]
  - Basedow^s disease [Unknown]

NARRATIVE: CASE EVENT DATE: 202003
